FAERS Safety Report 5176433-5 (Version None)
Quarter: 2006Q4

REPORT INFORMATION
  Report Type: 
  Country: None (occurrence: None)
  Receive Date: 20061130
  Receipt Date: 20061114
  Transmission Date: 20070319
  Serious: Yes (Other)
  Sender: FDA-Public Use
  Company Number: LIT-023-06-USA

PATIENT
  Age: 30 Year
  Sex: Female

DRUGS (2)
  1. IMMUNE GLOBULIN INTRAVENOUS (HUMAN) [Suspect]
     Indication: ASTHENIA
     Dosage: 2 MG/KG OVER 3 DAYS
  2. IMMUNE GLOBULIN INTRAVENOUS (HUMAN) [Suspect]
     Indication: FACIAL PALSY
     Dosage: 2 MG/KG OVER 3 DAYS

REACTIONS (4)
  - PURPURA [None]
  - RASH ERYTHEMATOUS [None]
  - RASH PAPULAR [None]
  - VASCULITIS [None]
